FAERS Safety Report 24299891 (Version 1)
Quarter: 2024Q3

REPORT INFORMATION
  Report Type: Spontaneous
  Country: US (occurrence: None)
  Receive Date: 20240909
  Receipt Date: 20240909
  Transmission Date: 20241016
  Serious: No
  Sender: FDA-CTU
  Company Number: None

PATIENT
  Age: 78 Year
  Sex: Female

DRUGS (4)
  1. ZEJULA [Suspect]
     Active Substance: NIRAPARIB
  2. CARBOPLATIN [Suspect]
     Active Substance: CARBOPLATIN
  3. GEMCITABINE [Suspect]
     Active Substance: GEMCITABINE
  4. FYLNETRA [Suspect]
     Active Substance: PEGFILGRASTIM-PBBK

REACTIONS (5)
  - Limb injury [None]
  - Haemorrhage [None]
  - Periorbital inflammation [None]
  - Erythema [None]
  - Scleral haemorrhage [None]
